FAERS Safety Report 5805479-6 (Version None)
Quarter: 2008Q3

REPORT INFORMATION
  Report Type: 
  Country: None (occurrence: None)
  Receive Date: 20080708
  Receipt Date: 20080625
  Transmission Date: 20090109
  Serious: Yes (Other)
  Sender: FDA-Public Use
  Company Number: 235789J08USA

PATIENT
  Age: 33 Year
  Sex: Female

DRUGS (6)
  1. REBIF [Suspect]
     Indication: MULTIPLE SCLEROSIS
     Dosage: 44 MCG, 3 IN 1 WEEKS, SUBCUTANEOUS
     Route: 058
     Dates: start: 20080215
  2. PREDNISOLONE (PREDNISONE) [Concomitant]
  3. CYMBALTA [Concomitant]
  4. TOFRANIL PM (IMPRAMINE EMBONATE) [Concomitant]
  5. PLAVIX [Concomitant]
  6. KEPPRA [Concomitant]

REACTIONS (2)
  - BLOOD TRIGLYCERIDES INCREASED [None]
  - CONVULSION [None]
